FAERS Safety Report 7965917-X (Version None)
Quarter: 2011Q4

REPORT INFORMATION
  Report Type: 
  Country: None (occurrence: None)
  Receive Date: 20111208
  Receipt Date: 20111201
  Transmission Date: 20120403
  Serious: Yes (Other)
  Sender: FDA-Public Use
  Company Number: JP-GLAXOSMITHKLINE-B0766545A

PATIENT
  Sex: Male

DRUGS (7)
  1. WARFARIN SODIUM [Concomitant]
     Indication: ATRIAL FLUTTER
     Dosage: 1.5MG PER DAY
     Route: 048
     Dates: start: 20060808
  2. CARVEDILOL [Concomitant]
     Indication: HYPERTENSION
     Dosage: 2.5MG PER DAY
     Route: 048
     Dates: start: 20110401
  3. CALCIUM CARBONATE [Concomitant]
     Indication: HYPERPHOSPHATAEMIA
     Dosage: 3000MG PER DAY
     Route: 048
     Dates: start: 20060313
  4. RADEN [Concomitant]
     Indication: GASTRITIS
     Dosage: 75MG PER DAY
     Route: 048
     Dates: start: 20101029
  5. UNKNOWN DRUG [Concomitant]
     Indication: HAEMODIALYSIS
  6. VALTREX [Suspect]
     Indication: HERPES ZOSTER
     Dosage: 1000MG TWICE PER DAY
     Route: 048
     Dates: start: 20111125, end: 20111128
  7. BUFFERIN [Concomitant]
     Indication: ATRIAL FLUTTER
     Dosage: 81MG PER DAY
     Route: 048
     Dates: start: 20060313

REACTIONS (5)
  - CEREBRAL ATROPHY [None]
  - DYSARTHRIA [None]
  - INCORRECT DOSE ADMINISTERED [None]
  - DIZZINESS [None]
  - NEUROTOXICITY [None]
